FAERS Safety Report 12227045 (Version 1)
Quarter: 2016Q1

REPORT INFORMATION
  Report Type: Spontaneous
  Country: GB (occurrence: GB)
  Receive Date: 20160331
  Receipt Date: 20160331
  Transmission Date: 20160526
  Serious: Yes (Other)
  Sender: FDA-Public Use
  Company Number: GB-TEVA-648037ACC

PATIENT
  Sex: Female

DRUGS (1)
  1. CARBIDOPA AND LEVODOPA [Suspect]
     Active Substance: CARBIDOPA\LEVODOPA
     Route: 065
     Dates: start: 201512

REACTIONS (12)
  - Asthenia [Unknown]
  - Somnolence [Unknown]
  - Tremor [Unknown]
  - Myalgia [Unknown]
  - Swelling [Unknown]
  - Feeling cold [Unknown]
  - Erythema [Unknown]
  - Swelling face [Unknown]
  - Paraesthesia [Unknown]
  - Peripheral swelling [Unknown]
  - Dizziness [Unknown]
  - Hot flush [Unknown]
